FAERS Safety Report 7569770-8 (Version None)
Quarter: 2011Q2

REPORT INFORMATION
  Report Type: 
  Country: None (occurrence: None)
  Receive Date: 20110620
  Receipt Date: 20110609
  Transmission Date: 20111010
  Serious: Yes (Hospitalization)
  Sender: FDA-Public Use
  Company Number: JPI-P-009821

PATIENT
  Age: 64 Year
  Sex: Female
  Weight: 73.0291 kg

DRUGS (19)
  1. EYE VITAMINS [Concomitant]
  2. MODAFINIL [Concomitant]
  3. BUPROPION HYDROCHLORIDE [Concomitant]
  4. DULOXETINE HYDROCHLORIDE [Concomitant]
  5. ATORVASTATIN CALCIUM [Concomitant]
  6. CYCLOSPORINE OPHTHALMIC [Concomitant]
  7. CYCLOBENZAPRINE [Concomitant]
  8. XYREM [Suspect]
     Indication: FIBROMYALGIA
     Dosage: 4.5 GM (2.25 GM, 2 IN 1 D), ORAL; 6 GM (3 GM, 2 IN 1 D), ORAL
     Route: 048
     Dates: start: 20091103
  9. XYREM [Suspect]
     Indication: HYPERSOMNIA
     Dosage: 4.5 GM (2.25 GM, 2 IN 1 D), ORAL; 6 GM (3 GM, 2 IN 1 D), ORAL
     Route: 048
     Dates: start: 20091103
  10. XYREM [Suspect]
     Indication: FIBROMYALGIA
     Dosage: 4.5 GM (2.25 GM, 2 IN 1 D), ORAL; 6 GM (3 GM, 2 IN 1 D), ORAL
     Route: 048
     Dates: start: 20090515, end: 20091102
  11. XYREM [Suspect]
     Indication: HYPERSOMNIA
     Dosage: 4.5 GM (2.25 GM, 2 IN 1 D), ORAL; 6 GM (3 GM, 2 IN 1 D), ORAL
     Route: 048
     Dates: start: 20090515, end: 20091102
  12. UNSPECIFIED PAIN MEDICATION [Concomitant]
  13. LEVOTHYROXINE SODIUM [Concomitant]
  14. ALLERGY SHOTS [Concomitant]
  15. FEXOFENADINE [Concomitant]
  16. TRAMADOL HCL [Concomitant]
  17. MOMETASONE FUROATE [Concomitant]
  18. FERROUS SULFATE TAB [Concomitant]
  19. HYDROCHLOROTHIAZIDE [Concomitant]

REACTIONS (5)
  - ARTHROPATHY [None]
  - DYSGEUSIA [None]
  - ARTHRALGIA [None]
  - CONDITION AGGRAVATED [None]
  - NEURALGIA [None]
